FAERS Safety Report 9155178 (Version 1)
Quarter: 2013Q1

REPORT INFORMATION
  Report Type: Report from Study
  Country: DE (occurrence: DE)
  Receive Date: 20130311
  Receipt Date: 20130311
  Transmission Date: 20140127
  Serious: Yes (Death, Hospitalization)
  Sender: FDA-Public Use
  Company Number: DE-ROCHE-1186298

PATIENT
  Age: 62 Year
  Sex: Female
  Weight: 89 kg

DRUGS (8)
  1. BEVACIZUMAB [Suspect]
     Indication: BREAST CANCER
     Dosage: DATE OF LAST DOSE PRIOR TO SAE 29/JAN/2013
     Route: 042
     Dates: start: 20120724
  2. CAPECITABINE [Suspect]
     Indication: BREAST CANCER
     Dosage: LAST DOSE PRIOR TO SAE 23/FEB/2013
     Route: 048
     Dates: start: 20120724
  3. NAVOBAN [Suspect]
     Indication: PRODUCT USED FOR UNKNOWN INDICATION
     Dosage: DAY 1, DAY 8 (WEEK 4)
     Route: 065
     Dates: start: 20120724
  4. IBANDRONATE [Concomitant]
     Route: 065
     Dates: start: 20071113
  5. OMEPRAZOL [Concomitant]
     Route: 065
     Dates: start: 20080701
  6. METOPROLOL [Concomitant]
     Route: 065
     Dates: start: 20080701
  7. LOPERAMIDE [Concomitant]
     Route: 065
     Dates: start: 20120724
  8. MCP [Concomitant]
     Route: 065
     Dates: start: 20120724

REACTIONS (3)
  - Death [Fatal]
  - Cholecystitis [Recovered/Resolved]
  - Constipation [Recovered/Resolved]
